FAERS Safety Report 11336079 (Version 1)
Quarter: 2015Q3

REPORT INFORMATION
  Report Type: Spontaneous
  Country: US (occurrence: None)
  Receive Date: 20150731
  Receipt Date: 20150731
  Transmission Date: 20151125
  Serious: Yes (Hospitalization)
  Sender: FDA-Public Use
  Company Number: None

PATIENT
  Age: 74 Year
  Sex: Female
  Weight: 66.3 kg

DRUGS (2)
  1. GEMCITABINE 1000 MG/M2 [Suspect]
     Active Substance: GEMCITABINE HYDROCHLORIDE
     Indication: PANCREATIC CARCINOMA
     Dosage: 1000 MG/M2  WEEKLY  INTRAVENOUS
     Route: 042
     Dates: start: 20150615, end: 20150629
  2. NAB-PACLITAXEL 125 MG/M2 [Suspect]
     Active Substance: PACLITAXEL
     Indication: PANCREATIC CARCINOMA
     Dosage: 125 MG/M2  WEEKLY  INTRAVENOUS
     Route: 042
     Dates: start: 20150615, end: 20150629

REACTIONS (5)
  - Chills [None]
  - Vomiting [None]
  - Pain [None]
  - Nausea [None]
  - Headache [None]

NARRATIVE: CASE EVENT DATE: 20150715
